FAERS Safety Report 16751536 (Version 2)
Quarter: 2019Q3

REPORT INFORMATION
  Report Type: Spontaneous
  Country: JP (occurrence: JP)
  Receive Date: 20190828
  Receipt Date: 20190903
  Transmission Date: 20191005
  Serious: No
  Sender: FDA-Public Use
  Company Number: JP-EISAI MEDICAL RESEARCH-EC-2019-061029

PATIENT
  Sex: Male

DRUGS (2)
  1. LENVIMA [Suspect]
     Active Substance: LENVATINIB
     Indication: HEPATOCELLULAR CARCINOMA
     Route: 048
     Dates: start: 20190627, end: 20190820
  2. LENVIMA [Suspect]
     Active Substance: LENVATINIB
     Dosage: UNKNOWN DECREASED DOSE
     Route: 048
     Dates: start: 20190829

REACTIONS (3)
  - Proteinuria [Recovered/Resolved]
  - Hypertension [Recovered/Resolved]
  - Oedema peripheral [Recovered/Resolved]

NARRATIVE: CASE EVENT DATE: 20190820
